FAERS Safety Report 15967809 (Version 1)
Quarter: 2019Q1

REPORT INFORMATION
  Report Type: Spontaneous
  Country: US (occurrence: US)
  Receive Date: 20190215
  Receipt Date: 20190215
  Transmission Date: 20190418
  Serious: No
  Sender: FDA-Public Use
  Company Number: US-PERRIGO-18US006621

PATIENT
  Age: 36 Year
  Sex: Female
  Weight: 86.17 kg

DRUGS (3)
  1. CETIRIZINE HYDROCHLORIDE. [Suspect]
     Active Substance: CETIRIZINE HYDROCHLORIDE
     Indication: RHINORRHOEA
     Dosage: 10 MG, QD, PRN
     Route: 048
     Dates: start: 201711, end: 201711
  2. HALLS [Concomitant]
     Active Substance: MENTHOL
     Indication: UPPER RESPIRATORY TRACT CONGESTION
     Dosage: UNKNOWN, UNKNOWN
     Route: 048
     Dates: start: 201806, end: 201806
  3. CETIRIZINE HYDROCHLORIDE. [Suspect]
     Active Substance: CETIRIZINE HYDROCHLORIDE
     Indication: MULTIPLE ALLERGIES
     Dosage: 20 MG, SINGLE
     Route: 048
     Dates: start: 20180620, end: 20180620

REACTIONS (2)
  - Wrong product administered [Recovered/Resolved]
  - Drug ineffective [Unknown]

NARRATIVE: CASE EVENT DATE: 201711
